FAERS Safety Report 19397447 (Version 2)
Quarter: 2021Q2

REPORT INFORMATION
  Report Type: Spontaneous
  Country: FR (occurrence: FR)
  Receive Date: 20210609
  Receipt Date: 20210618
  Transmission Date: 20210717
  Serious: Yes (Other)
  Sender: FDA-Public Use
  Company Number: FR-CELGENEUS-FRA-20210601140

PATIENT
  Age: 68 Year
  Sex: Male

DRUGS (10)
  1. THALIDOMIDE [Suspect]
     Active Substance: THALIDOMIDE
     Indication: LICHEN MYXOEDEMATOSUS
     Dosage: 100 MILLIGRAM
     Route: 048
     Dates: start: 2008
  2. LEVETIRACETAM. [Concomitant]
     Active Substance: LEVETIRACETAM
     Indication: EPILEPSY
     Route: 065
  3. SODIUM THIOPENTAL [Concomitant]
     Active Substance: THIOPENTAL SODIUM
     Indication: GENERALISED TONIC-CLONIC SEIZURE
     Route: 065
  4. SODIUM FOSPHENYTOIN [Concomitant]
     Indication: GENERALISED TONIC-CLONIC SEIZURE
     Route: 065
  5. PREDNISOLONE. [Concomitant]
     Active Substance: PREDNISOLONE
     Indication: LICHEN MYXOEDEMATOSUS
     Dosage: 60 MILLIGRAM
     Route: 065
  6. IMMUNOGLOBULIN [Concomitant]
     Indication: PRODUCT USED FOR UNKNOWN INDICATION
     Dosage: 1 MILLIGRAM/KILOGRAM
     Route: 041
     Dates: start: 201804
  7. CLONAZEPAM. [Concomitant]
     Active Substance: CLONAZEPAM
     Indication: GENERALISED TONIC-CLONIC SEIZURE
     Route: 065
  8. ACITRETIN. [Concomitant]
     Active Substance: ACITRETIN
     Indication: PRODUCT USED FOR UNKNOWN INDICATION
     Dosage: 25 MILLIGRAM
     Route: 065
  9. PHENOBARBITAL. [Concomitant]
     Active Substance: PHENOBARBITAL
     Indication: GENERALISED TONIC-CLONIC SEIZURE
     Route: 065
  10. THALIDOMIDE [Suspect]
     Active Substance: THALIDOMIDE
     Indication: OFF LABEL USE

REACTIONS (1)
  - Axonal neuropathy [Recovering/Resolving]
